FAERS Safety Report 4636036-5 (Version None)
Quarter: 2005Q2

REPORT INFORMATION
  Report Type: 
  Country: None (occurrence: None)
  Receive Date: 20050331
  Receipt Date: 20040412
  Transmission Date: 20051028
  Serious: Yes (Other)
  Sender: FDA-Public Use
  Company Number: 200411743BCC

PATIENT
  Age: 78 Year
  Sex: Female
  Weight: 43.5453 kg

DRUGS (5)
  1. ALEVE [Suspect]
     Indication: ARTHRALGIA
     Dosage: 220 MG, BID, ORAL
     Route: 048
     Dates: start: 20030101, end: 20030330
  2. ASPIRIN [Suspect]
     Dosage: 81 MG, TOTAL DAILY
  3. PREMARIN [Concomitant]
  4. ALDACTONE [Concomitant]
  5. NEXIUM [Concomitant]

REACTIONS (2)
  - ABDOMINAL PAIN UPPER [None]
  - ULCER HAEMORRHAGE [None]
